FAERS Safety Report 7437004-0 (Version None)
Quarter: 2011Q2

REPORT INFORMATION
  Report Type: 
  Country: None (occurrence: None)
  Receive Date: 20110421
  Receipt Date: 20110421
  Transmission Date: 20111010
  Serious: No
  Sender: FDA-Public Use
  Company Number: None

PATIENT
  Sex: Male
  Weight: 69.8539 kg

DRUGS (4)
  1. ZOLPIDEM [Suspect]
     Indication: SLEEP DISORDER THERAPY
     Dosage: 1 EACH ONCE AT BEDTIME
     Dates: start: 20110405
  2. ZOLPIDEM [Suspect]
     Indication: RESTLESS LEGS SYNDROME
     Dosage: 1 EACH ONCE AT BEDTIME
     Dates: start: 20110405
  3. ZOLPIDEM [Suspect]
     Indication: SLEEP DISORDER THERAPY
     Dosage: 1 EACH ONCE AT BEDTIME
     Dates: start: 20110331
  4. ZOLPIDEM [Suspect]
     Indication: RESTLESS LEGS SYNDROME
     Dosage: 1 EACH ONCE AT BEDTIME
     Dates: start: 20110331

REACTIONS (2)
  - PRODUCT SUBSTITUTION ISSUE [None]
  - PRODUCT MEASURED POTENCY ISSUE [None]
